FAERS Safety Report 17940834 (Version 2)
Quarter: 2021Q2

REPORT INFORMATION
  Report Type: Spontaneous
  Country: US (occurrence: US)
  Receive Date: 20200625
  Receipt Date: 20210408
  Transmission Date: 20210717
  Serious: Yes (Death, Other)
  Sender: FDA-Public Use
  Company Number: US-SA-2020SA162135

PATIENT
  Age: 89 Year
  Sex: Male

DRUGS (2)
  1. ZANTAC [Suspect]
     Active Substance: RANITIDINE HYDROCHLORIDE
     Indication: ABDOMINAL DISCOMFORT
  2. ZANTAC [Suspect]
     Active Substance: RANITIDINE HYDROCHLORIDE
     Indication: DYSPEPSIA
     Dosage: 75 MG, QD
     Dates: start: 198505, end: 201801

REACTIONS (2)
  - Gastrointestinal carcinoma [Unknown]
  - Prostate cancer [Fatal]

NARRATIVE: CASE EVENT DATE: 199201
